FAERS Safety Report 7746710-X (Version None)
Quarter: 2011Q3

REPORT INFORMATION
  Report Type: 
  Country: None (occurrence: None)
  Receive Date: 20110913
  Receipt Date: 20110902
  Transmission Date: 20111222
  Serious: Yes (Death)
  Sender: FDA-Public Use
  Company Number: US-BAYER-2011-010971

PATIENT
  Age: 22 Year
  Sex: Female
  Weight: 104 kg

DRUGS (3)
  1. YAZ [Suspect]
     Dosage: UNK
     Route: 048
     Dates: start: 20090212
  2. NSAID'S [Concomitant]
  3. IBUPROFEN [Concomitant]

REACTIONS (3)
  - PULMONARY EMBOLISM [None]
  - INJURY [None]
  - PAIN [None]
